FAERS Safety Report 17174614 (Version 1)
Quarter: 2019Q4

REPORT INFORMATION
  Report Type: Spontaneous
  Country: US (occurrence: US)
  Receive Date: 20191219
  Receipt Date: 20191219
  Transmission Date: 20200122
  Serious: No
  Sender: FDA-Public Use
  Company Number: US-UCBSA-2014004237

PATIENT
  Sex: Female

DRUGS (1)
  1. CIMZIA [Suspect]
     Active Substance: CERTOLIZUMAB PEGOL
     Dosage: DOSING INSTRUCT: 400 MG; STRENGTH: 200 MG

REACTIONS (1)
  - Application site mass [Not Recovered/Not Resolved]

NARRATIVE: CASE EVENT DATE: 20140701
